FAERS Safety Report 12870355 (Version 1)
Quarter: 2016Q4

REPORT INFORMATION
  Report Type: Spontaneous
  Country: IR (occurrence: IR)
  Receive Date: 20161021
  Receipt Date: 20161021
  Transmission Date: 20170207
  Serious: Yes (Hospitalization, Other)
  Sender: FDA-Public Use
  Company Number: IR-JNJFOC-20161012835

PATIENT

DRUGS (2)
  1. PARACETAMOL [Suspect]
     Active Substance: ACETAMINOPHEN
     Indication: PRODUCT USED FOR UNKNOWN INDICATION
     Route: 065
  2. PARACETAMOL [Suspect]
     Active Substance: ACETAMINOPHEN
     Route: 065

REACTIONS (9)
  - Mobility decreased [Unknown]
  - Discomfort [Unknown]
  - Toxicity to various agents [Unknown]
  - Anxiety [Unknown]
  - Impaired self-care [Unknown]
  - Activities of daily living impaired [Unknown]
  - Depression [Unknown]
  - Cognitive disorder [Unknown]
  - Pain [Unknown]
